FAERS Safety Report 12472045 (Version 2)
Quarter: 2016Q3

REPORT INFORMATION
  Report Type: Report from Study
  Country: AR (occurrence: AR)
  Receive Date: 20160616
  Receipt Date: 20160704
  Transmission Date: 20161109
  Serious: Yes (Hospitalization, Other)
  Sender: FDA-Public Use
  Company Number: PHHY2016AR081988

PATIENT
  Age: 52 Year
  Sex: Male

DRUGS (3)
  1. EVEROLIMUS [Suspect]
     Active Substance: EVEROLIMUS
     Indication: IMMUNOSUPPRESSANT DRUG THERAPY
     Dosage: 1.5 MG, UNK
     Route: 048
     Dates: start: 20160524
  2. EVEROLIMUS [Suspect]
     Active Substance: EVEROLIMUS
     Indication: RENAL TRANSPLANT
  3. BELATACEPT [Suspect]
     Active Substance: BELATACEPT
     Indication: IMMUNOSUPPRESSANT DRUG THERAPY
     Dosage: 890 MG, UNK
     Route: 042
     Dates: start: 20160519

REACTIONS (11)
  - Escherichia bacteraemia [Unknown]
  - Pyelonephritis [Recovered/Resolved]
  - Klebsiella infection [Unknown]
  - Kidney transplant rejection [Unknown]
  - Pyelonephritis [Unknown]
  - Pyrexia [Unknown]
  - Vomiting [Unknown]
  - Haematuria [Unknown]
  - Urinary tract infection [Unknown]
  - Complications of transplanted kidney [Unknown]
  - Nausea [Unknown]

NARRATIVE: CASE EVENT DATE: 20160519
